FAERS Safety Report 14345574 (Version 3)
Quarter: 2018Q1

REPORT INFORMATION
  Report Type: Report from Study
  Country: AR (occurrence: AR)
  Receive Date: 20180103
  Receipt Date: 20180130
  Transmission Date: 20180509
  Serious: Yes (Other)
  Sender: FDA-Public Use
  Company Number: PHHY2017AR196592

PATIENT
  Age: 51 Year
  Sex: Female

DRUGS (4)
  1. COSENTYX [Suspect]
     Active Substance: SECUKINUMAB
     Dosage: 150 MG, QMO
     Route: 065
     Dates: start: 20171129
  2. COSENTYX [Suspect]
     Active Substance: SECUKINUMAB
     Indication: PSORIATIC ARTHROPATHY
     Dosage: 300 MG, QMO
     Route: 065
     Dates: start: 20160330, end: 20170910
  3. PREDNISONE. [Concomitant]
     Active Substance: PREDNISONE
     Indication: PRODUCT USED FOR UNKNOWN INDICATION
     Dosage: 0.5 MG, QD
     Route: 065
  4. METHOTREXATE. [Concomitant]
     Active Substance: METHOTREXATE
     Indication: PRODUCT USED FOR UNKNOWN INDICATION
     Dosage: 15 MG, QW
     Route: 065

REACTIONS (14)
  - Pharyngeal ulceration [Recovered/Resolved]
  - Influenza [Recovering/Resolving]
  - Oropharyngeal pain [Not Recovered/Not Resolved]
  - Oropharyngeal plaque [Not Recovered/Not Resolved]
  - Cough [Unknown]
  - Inappropriate schedule of drug administration [Unknown]
  - Nasopharyngitis [Recovering/Resolving]
  - Bronchitis [Recovered/Resolved]
  - Herpes virus infection [Not Recovered/Not Resolved]
  - Malaise [Unknown]
  - Laryngitis [Recovered/Resolved]
  - Pharyngeal erythema [Not Recovered/Not Resolved]
  - Pyrexia [Not Recovered/Not Resolved]
  - White blood cell count increased [Unknown]

NARRATIVE: CASE EVENT DATE: 20160330
